FAERS Safety Report 7822048-7 (Version None)
Quarter: 2011Q4

REPORT INFORMATION
  Report Type: 
  Country: None (occurrence: None)
  Receive Date: 20111018
  Receipt Date: 20111012
  Transmission Date: 20120403
  Serious: Yes (Hospitalization, Other)
  Sender: FDA-Public Use
  Company Number: PHEH2011US06696

PATIENT
  Age: 81 Year
  Sex: Male
  Weight: 160 kg

DRUGS (1)
  1. TOBI [Suspect]
     Dosage: 300 MG, BID, 28 DAYS ON AND 28 DAYS OFF
     Dates: start: 20110118

REACTIONS (6)
  - VISUAL IMPAIRMENT [None]
  - DRUG HYPERSENSITIVITY [None]
  - PLATELET COUNT DECREASED [None]
  - SPLEEN DISORDER [None]
  - LIMB DISCOMFORT [None]
  - STOMATITIS [None]
